FAERS Safety Report 8926029 (Version 1)
Quarter: 2012Q4

REPORT INFORMATION
  Report Type: 
  Country: US (occurrence: US)
  Receive Date: 20121126
  Receipt Date: 20121126
  Transmission Date: 20130627
  Serious: Yes (Hospitalization)
  Sender: FDA-Public Use
  Company Number: US-BAYER-2012-119453

PATIENT
  Age: 19 Year
  Sex: Female

DRUGS (7)
  1. GIANVI [Suspect]
     Indication: POLYCYSTIC OVARIAN SYNDROME
  2. YAZ [Suspect]
     Indication: POLYCYSTIC OVARIAN SYNDROME
  3. ACETAMINOPHEN [Concomitant]
     Dosage: UNK UNK, PRN
     Dates: start: 20120131
  4. ALEVE [Concomitant]
     Dosage: UNK UNK, PRN
     Dates: start: 20120120, end: 20120201
  5. IBUPROFEN [Concomitant]
     Dosage: UNK
     Dates: start: 20120120
  6. SERTRALINE [Concomitant]
     Dosage: UNK
     Dates: start: 20120120, end: 20120131
  7. OMEPRAZOLE [Concomitant]

REACTIONS (2)
  - Pulmonary embolism [None]
  - Deep vein thrombosis [None]
